FAERS Safety Report 7442194-X (Version None)
Quarter: 2011Q2

REPORT INFORMATION
  Report Type: 
  Country: None (occurrence: None)
  Receive Date: 20110428
  Receipt Date: 20110415
  Transmission Date: 20111010
  Serious: Yes (Other)
  Sender: FDA-Public Use
  Company Number: PHHY2011US24855

PATIENT
  Sex: Female

DRUGS (8)
  1. MULTI-VITAMINS [Concomitant]
  2. DIOVAN [Suspect]
     Dosage: 160 MG, UNK
  3. PLAVIX [Concomitant]
     Dosage: 75 MG, UNK
  4. BONIVA [Concomitant]
  5. STERILET T [Concomitant]
  6. AMLODIPINE [Concomitant]
     Dosage: 5 MG, UNK
  7. LIPITOR [Concomitant]
     Dosage: 40 MG, UNK
  8. METOPROLOL [Concomitant]
     Dosage: 50 MG, UNK

REACTIONS (4)
  - EYE DISORDER [None]
  - BODY TEMPERATURE INCREASED [None]
  - PAIN IN EXTREMITY [None]
  - RASH [None]
